FAERS Safety Report 23518953 (Version 1)
Quarter: 2024Q1

REPORT INFORMATION
  Report Type: Spontaneous
  Country: US (occurrence: US)
  Receive Date: 20240213
  Receipt Date: 20240213
  Transmission Date: 20240410
  Serious: No
  Sender: FDA-Public Use
  Company Number: US-JNJFOC-20240157377

PATIENT
  Age: 7 Decade
  Sex: Female
  Weight: 45 kg

DRUGS (8)
  1. IMODIUM [Suspect]
     Active Substance: LOPERAMIDE HYDROCHLORIDE
     Indication: Diarrhoea
     Route: 065
  2. VELETRI [Concomitant]
     Active Substance: EPOPROSTENOL
     Indication: Dyspnoea
     Dosage: 30 NG PER KG PER MIN
     Route: 042
  3. VELETRI [Concomitant]
     Active Substance: EPOPROSTENOL
     Indication: Mucosal disorder
  4. VELETRI [Concomitant]
     Active Substance: EPOPROSTENOL
     Indication: Fatigue
  5. UPTRAVI [Concomitant]
     Active Substance: SELEXIPAG
     Indication: Dyspnoea
     Dosage: 400MCG
     Route: 048
  6. UPTRAVI [Concomitant]
     Active Substance: SELEXIPAG
     Indication: Mucosal disorder
  7. UPTRAVI [Concomitant]
     Active Substance: SELEXIPAG
     Indication: Fatigue
  8. OPSUMIT [Concomitant]
     Active Substance: MACITENTAN
     Indication: Product used for unknown indication
     Route: 065

REACTIONS (2)
  - Constipation [Unknown]
  - Pain [Unknown]
